FAERS Safety Report 23631627 (Version 1)
Quarter: 2024Q1

REPORT INFORMATION
  Report Type: Spontaneous
  Country: US (occurrence: US)
  Receive Date: 20240314
  Receipt Date: 20240314
  Transmission Date: 20240409
  Serious: Yes (Other)
  Sender: FDA-Public Use
  Company Number: US-OPELLA-2024OHG007994

PATIENT

DRUGS (1)
  1. TALC [Suspect]
     Active Substance: TALC
     Indication: Product used for unknown indication
     Route: 065

REACTIONS (2)
  - Mesothelioma [Unknown]
  - Exposure to chemical pollution [Unknown]
